FAERS Safety Report 12711899 (Version 1)
Quarter: 2016Q3

REPORT INFORMATION
  Report Type: Spontaneous
  Country: CH (occurrence: CH)
  Receive Date: 20160902
  Receipt Date: 20160902
  Transmission Date: 20161109
  Serious: Yes (Disabling)
  Sender: FDA-Public Use
  Company Number: CH-BAYER-2016-168749

PATIENT
  Age: 70 Year
  Sex: Female
  Weight: 58 kg

DRUGS (25)
  1. ALIMTA [Suspect]
     Active Substance: PEMETREXED DISODIUM
     Indication: LUNG ADENOCARCINOMA
     Dosage: DOSE UNKNOWNXTOTAL 3 DOSES
     Route: 041
     Dates: start: 20160421, end: 20160614
  2. CISPLATIN EBEWE [Suspect]
     Active Substance: CISPLATIN
     Indication: LUNG ADENOCARCINOMA STAGE IV
     Dosage: 130 MG, INFUSION DURATION 60 MINXCYCLE DURATION 21DXTOTAL 4 DOSES
     Route: 041
     Dates: start: 20160126, end: 20160331
  3. ONDANSETRON [Concomitant]
     Active Substance: ONDANSETRON
  4. EMEND [Concomitant]
     Active Substance: APREPITANT
     Route: 048
  5. ULTRAVIST [Suspect]
     Active Substance: IOPROMIDE
     Indication: COMPUTERISED TOMOGRAM THORAX
     Dosage: 110 ML, UNK
     Route: 040
     Dates: start: 20160222, end: 20160222
  6. CALCIUM CARBONATE W/COLECALCIFEROL [Concomitant]
     Active Substance: CALCIUM CARBONATE\CHOLECALCIFEROL
     Route: 048
  7. ATENOLOL. [Concomitant]
     Active Substance: ATENOLOL
     Dosage: 50 MG, QD
     Route: 048
  8. FORTECORTIN [Concomitant]
     Active Substance: DEXAMETHASONE
     Route: 048
  9. PANTOZOL [Suspect]
     Active Substance: PANTOPRAZOLE SODIUM
     Indication: PRODUCT USED FOR UNKNOWN INDICATION
     Dosage: 40 MG, BID (INITIAL DOSE 40 MG/D)
     Route: 048
     Dates: start: 201601
  10. VITARUBIN [Concomitant]
     Active Substance: CYANOCOBALAMIN
     Dosage: 1000 ?G, UNK
     Route: 058
  11. PRIMPERAN [Concomitant]
     Active Substance: METOCLOPRAMIDE HYDROCHLORIDE
  12. EUTHYROX [Concomitant]
     Active Substance: LEVOTHYROXINE SODIUM
     Dosage: 0.5 X 50 MCG PER DAY
  13. FRAGMIN [Concomitant]
     Active Substance: DALTEPARIN SODIUM
     Indication: ADMINISTRATION SITE THROMBOSIS
     Dosage: WAS NOT COMBINED WITH XARELTO
     Route: 058
  14. ALIMTA [Suspect]
     Active Substance: PEMETREXED DISODIUM
     Indication: LUNG ADENOCARCINOMA STAGE IV
     Dosage: 900 MG, INFUSION DURATION 10 MINXCYCLE DURATION 21 DAYSX4 TOTAL
     Route: 041
     Dates: start: 20160126, end: 20160331
  15. APROVEL [Suspect]
     Active Substance: IRBESARTAN
     Indication: HYPERTENSION
     Dosage: 150 MG NOT COMBINED WITH COAPROVEL
     Route: 048
     Dates: start: 2016, end: 2016
  16. COAPROVEL [Suspect]
     Active Substance: HYDROCHLOROTHIAZIDE\IRBESARTAN
     Indication: HYPERTENSION
     Dosage: 1 DF, QD 150/12.5 MGXNOT COMBINED WITH APROVEL
     Route: 048
     Dates: start: 2016, end: 2016
  17. XARELTO [Concomitant]
     Active Substance: RIVAROXABAN
     Indication: ADMINISTRATION SITE THROMBOSIS
     Dosage: NOT COMBINED WITH FRAGMIN
     Route: 048
  18. DAFALGAN [Concomitant]
     Active Substance: ACETAMINOPHEN
     Route: 048
  19. SOLU-MEDROL [Concomitant]
     Active Substance: METHYLPREDNISOLONE SODIUM SUCCINATE
     Route: 041
  20. OPTIDERM [Concomitant]
     Route: 061
     Dates: start: 201602, end: 201603
  21. XENETIX [Suspect]
     Active Substance: IOBITRIDOL
     Indication: COMPUTERISED TOMOGRAM THORAX
     Dosage: 110 ML
     Route: 040
     Dates: start: 20160415, end: 20160719
  22. EZETROL [Concomitant]
     Active Substance: EZETIMIBE
     Dosage: 100 MG, QD
     Route: 048
  23. ASPIRIN CARDIO 300 [Concomitant]
     Active Substance: ASPIRIN
     Dosage: 100 MG, QD
  24. ANDREAFOL [Concomitant]
     Route: 048
  25. MOMETASONE FUROATE. [Concomitant]
     Active Substance: MOMETASONE FUROATE
     Route: 061
     Dates: start: 201602, end: 201603

REACTIONS (2)
  - Drug interaction [Unknown]
  - Chronic kidney disease [Not Recovered/Not Resolved]

NARRATIVE: CASE EVENT DATE: 201601
